FAERS Safety Report 8619590-8 (Version None)
Quarter: 2012Q3

REPORT INFORMATION
  Report Type: 
  Country: None (occurrence: None)
  Receive Date: 20120824
  Receipt Date: 20120820
  Transmission Date: 20120928
  Serious: Yes (Other)
  Sender: FDA-Public Use
  Company Number: PHHY2012MX072477

PATIENT
  Sex: Male

DRUGS (2)
  1. ONBREZ [Suspect]
     Indication: CHRONIC OBSTRUCTIVE PULMONARY DISEASE
     Dosage: 150 UG, QD
     Dates: start: 20111101
  2. ALDACTONE [Concomitant]
     Dosage: 1 DF, QD
     Dates: start: 20090101

REACTIONS (2)
  - VISION BLURRED [None]
  - HAEMORRHAGE [None]
